FAERS Safety Report 10877017 (Version 1)
Quarter: 2015Q1

REPORT INFORMATION
  Report Type: Spontaneous
  Country: US (occurrence: US)
  Receive Date: 20150302
  Receipt Date: 20150302
  Transmission Date: 20150721
  Serious: No
  Sender: FDA-Public Use
  Company Number: US-009507513-1502USA008826

PATIENT
  Sex: Male

DRUGS (1)
  1. LOVASTATIN. [Suspect]
     Active Substance: LOVASTATIN
     Route: 048

REACTIONS (1)
  - Drug hypersensitivity [Unknown]
